FAERS Safety Report 12196357 (Version 1)
Quarter: 2016Q1

REPORT INFORMATION
  Report Type: Spontaneous
  Country: FR (occurrence: FR)
  Receive Date: 20160321
  Receipt Date: 20160321
  Transmission Date: 20160526
  Serious: Yes (Hospitalization)
  Sender: FDA-Public Use
  Company Number: FR-SA-2016SA052398

PATIENT
  Age: 86 Year
  Sex: Female

DRUGS (16)
  1. LOVENOX [Concomitant]
     Active Substance: ENOXAPARIN SODIUM
     Dosage: 4000 IU ANTI-XA/0.4 ML, SOLUTION FOR INJECTION IN AMPOULE
     Route: 058
     Dates: start: 20160204, end: 20160205
  2. DOLIPRANE [Concomitant]
     Active Substance: ACETAMINOPHEN
     Dosage: 2.2.2.2 IF REQUIRED
     Route: 048
  3. ZOPICLONE [Concomitant]
     Active Substance: ZOPICLONE
     Indication: INSOMNIA
     Dosage: 0-0-1
     Route: 048
  4. LASILIX FAIBLE [Suspect]
     Active Substance: FUROSEMIDE
     Route: 048
     Dates: end: 20160201
  5. XANAX [Concomitant]
     Active Substance: ALPRAZOLAM
     Indication: ANXIETY
     Dosage: .25 MG: 1.1.1
     Route: 048
  6. RISPERIDONE. [Concomitant]
     Active Substance: RISPERIDONE
     Indication: PSYCHOTIC DISORDER
     Dosage: ORAL SOLUTION: 0.25 MG. 0.0 SINCE ON 27/01/2016 AND INCREASED TO 0.5 MG/DAY FROM 03/02/2016
     Route: 048
     Dates: start: 20160127
  7. AUGMENTIN [Concomitant]
     Active Substance: AMOXICILLIN\CLAVULANATE POTASSIUM
     Indication: LUNG INFECTION
     Route: 048
     Dates: start: 20160129, end: 20160208
  8. RISPERIDONE. [Concomitant]
     Active Substance: RISPERIDONE
     Indication: PSYCHOTIC DISORDER
     Dosage: ORAL SOLUTION: 0.25 MG. 0.0 SINCE ON 27/01/2016 AND INCREASED TO 0.5 MG/DAY FROM 03/02/2016
     Route: 048
     Dates: start: 20160203
  9. ECONAZOLE [Concomitant]
     Active Substance: ECONAZOLE
     Indication: FUNGAL INFECTION
     Dates: start: 20160126
  10. DEROXAT [Suspect]
     Active Substance: PAROXETINE HYDROCHLORIDE
     Indication: DEPRESSION
     Route: 048
  11. MOVICOL [Concomitant]
     Active Substance: POLYETHYLENE GLYCOL 3350\POTASSIUM CHLORIDE\SODIUM BICARBONATE\SODIUM CHLORIDE
     Indication: CONSTIPATION
     Route: 048
     Dates: start: 20150202
  12. ONBREZ [Concomitant]
     Active Substance: INDACATEROL
     Dosage: 150 MICROGRAMS, POWDER FOR INHALATION IN CAPSULE
     Route: 048
  13. DEROXAT [Suspect]
     Active Substance: PAROXETINE HYDROCHLORIDE
     Indication: DEPRESSION
     Route: 048
     Dates: start: 20151231
  14. KARDEGIC [Concomitant]
     Active Substance: ASPIRIN LYSINE
     Dosage: 75 MG, POWDER FOR ORAL SOLUTION IN SACHET-DOSE, 0-1-0
     Route: 048
  15. LEVOTHYROX [Concomitant]
     Active Substance: LEVOTHYROXINE
     Dosage: 1.0.0
     Route: 048
  16. REFRESH [Concomitant]
     Active Substance: UNSPECIFIED INGREDIENT
     Dosage: DROPS (1 DROP, 2 IN 1 DAY (S))
     Route: 047

REACTIONS (2)
  - Hyponatraemia [Recovered/Resolved]
  - Acute kidney injury [Recovered/Resolved]

NARRATIVE: CASE EVENT DATE: 20160202
